FAERS Safety Report 22529936 (Version 10)
Quarter: 2023Q4

REPORT INFORMATION
  Report Type: Spontaneous
  Country: US (occurrence: US)
  Receive Date: 20230607
  Receipt Date: 20231205
  Transmission Date: 20240110
  Serious: Yes (Hospitalization, Other)
  Sender: FDA-Public Use
  Company Number: US-PFIZER INC-202200027273

PATIENT
  Age: 71 Year
  Sex: Female

DRUGS (9)
  1. IBRANCE [Suspect]
     Active Substance: PALBOCICLIB
     Indication: Breast cancer metastatic
     Dosage: 125 MG
     Dates: start: 20210408
  2. IBRANCE [Suspect]
     Active Substance: PALBOCICLIB
     Dosage: 100 MG
     Dates: start: 20210513
  3. IBRANCE [Suspect]
     Active Substance: PALBOCICLIB
     Dosage: TAKE WITH OR WITHOUT FOOD ON DAYS 1-21 OF 28 DAY CYCLE
     Route: 048
     Dates: start: 20221121
  4. IBRANCE [Suspect]
     Active Substance: PALBOCICLIB
     Dosage: TAKE WITH OR WITHOUT FOOD ON DAYS 1-21 OF 28 DAY CYCLE
     Route: 048
     Dates: start: 20221219
  5. IBRANCE [Suspect]
     Active Substance: PALBOCICLIB
     Dosage: 100 MG
     Dates: start: 20230320
  6. IBRANCE [Suspect]
     Active Substance: PALBOCICLIB
     Dosage: 100 MG
     Dates: start: 20231005
  7. IBRANCE [Suspect]
     Active Substance: PALBOCICLIB
     Dosage: 100 MG, CYCLIC (TAKE WITH OR WITHOUT FOOD ON DAYS 1 -21 OF 28 DAY CYCLE)
     Route: 048
     Dates: start: 20231103
  8. ANASTROZOLE [Suspect]
     Active Substance: ANASTROZOLE
     Dosage: UNK
     Dates: start: 20210408
  9. ATIVAN [Concomitant]
     Active Substance: LORAZEPAM
     Indication: Anxiety
     Dosage: 1 MG, AS NEEDED (EVERY 6 HOURS AS NEEDED, UP TO 14 DAYS)
     Route: 048

REACTIONS (5)
  - Angioedema [Unknown]
  - Malaise [Unknown]
  - Neoplasm progression [Unknown]
  - Somnolence [Unknown]
  - Inappropriate schedule of product administration [Unknown]

NARRATIVE: CASE EVENT DATE: 20230629
